FAERS Safety Report 22816731 (Version 2)
Quarter: 2023Q4

REPORT INFORMATION
  Report Type: Report from Study
  Country: AT (occurrence: AT)
  Receive Date: 20230812
  Receipt Date: 20231219
  Transmission Date: 20240110
  Serious: Yes (Other)
  Sender: FDA-Public Use
  Company Number: AT-CELLTRION INC.-2023AT015882

PATIENT

DRUGS (61)
  1. TRASTUZUMAB [Suspect]
     Active Substance: TRASTUZUMAB
     Indication: HER2 positive breast cancer
     Dosage: 408 MG, EVERY 3 WEEK
     Route: 042
     Dates: start: 20181219, end: 20200424
  2. TRASTUZUMAB [Suspect]
     Active Substance: TRASTUZUMAB
     Dosage: 438 MG, EVERY 3 WEEK
     Route: 042
     Dates: start: 20181017, end: 20181017
  3. TRASTUZUMAB [Suspect]
     Active Substance: TRASTUZUMAB
     Dosage: 420 MG, EVERY 3 WEEK
     Route: 042
     Dates: start: 20181128, end: 20181128
  4. TRASTUZUMAB [Suspect]
     Active Substance: TRASTUZUMAB
     Dosage: 450 MG, EVERY 3 WEEK
     Route: 042
     Dates: start: 20200515, end: 20210402
  5. XGEVA [Suspect]
     Active Substance: DENOSUMAB
     Indication: HER2 positive breast cancer
     Dosage: UNK
     Route: 058
     Dates: start: 20181017, end: 20201127
  6. XGEVA [Suspect]
     Active Substance: DENOSUMAB
     Dosage: 120 MG
     Route: 058
     Dates: start: 20200310
  7. XGEVA [Suspect]
     Active Substance: DENOSUMAB
     Dosage: 120 MG, MONTHLY (MOST RECENT DOSE PRIOR TO THE EVENT: 10/MAY/2020)
     Route: 058
     Dates: start: 20170505, end: 20180329
  8. HERCEPTIN [Suspect]
     Active Substance: TRASTUZUMAB
     Indication: HER2 positive breast cancer
     Dosage: 438 MG, EVERY 3 WEEK
     Route: 042
     Dates: start: 20180926, end: 20180926
  9. HERCEPTIN [Suspect]
     Active Substance: TRASTUZUMAB
     Dosage: 712 MG, EVERY 3 WEEK
     Route: 042
     Dates: start: 20170324, end: 20170324
  10. HERCEPTIN [Suspect]
     Active Substance: TRASTUZUMAB
     Dosage: 480 MG, EVERY 3 WEEK
     Route: 042
     Dates: start: 20170828, end: 20171030
  11. HERCEPTIN [Suspect]
     Active Substance: TRASTUZUMAB
     Dosage: 450 MG, EVERY 3 WEEK
     Route: 042
     Dates: start: 20180723, end: 20180904
  12. HERCEPTIN [Suspect]
     Active Substance: TRASTUZUMAB
     Dosage: 474 MG, EVERY 3 WEEK
     Route: 042
     Dates: start: 20171213, end: 20180514
  13. HERCEPTIN [Suspect]
     Active Substance: TRASTUZUMAB
     Dosage: 462 MG, EVERY 3 WEEK
     Route: 042
     Dates: start: 20180608, end: 20180608
  14. HERCEPTIN [Suspect]
     Active Substance: TRASTUZUMAB
     Dosage: 534 MG, EVERY 3 WEEK
     Route: 042
     Dates: start: 20170414, end: 20170619
  15. HERCEPTIN [Suspect]
     Active Substance: TRASTUZUMAB
     Dosage: 534 MG, EVERY 3 WEEK
     Route: 042
     Dates: start: 20170714, end: 20170804
  16. HERCEPTIN [Suspect]
     Active Substance: TRASTUZUMAB
     Dosage: 420 MG, EVERY 3 WEEK
     Route: 042
     Dates: start: 20181107, end: 20181107
  17. PERJETA [Suspect]
     Active Substance: PERTUZUMAB
     Indication: HER2 positive breast cancer
     Dosage: 840 MG, EVERY 3 WEEK
     Route: 042
     Dates: start: 20170324, end: 20170324
  18. PERJETA [Suspect]
     Active Substance: PERTUZUMAB
     Dosage: 420 MG, EVERY 3 WEEK
     Route: 042
     Dates: start: 20171213, end: 20180608
  19. PERJETA [Suspect]
     Active Substance: PERTUZUMAB
     Dosage: 420 MG, EVERY 3 WEEK
     Route: 042
     Dates: start: 20170414, end: 20170619
  20. PERJETA [Suspect]
     Active Substance: PERTUZUMAB
     Dosage: 420 MG, EVERY 3 WEEK
     Route: 042
     Dates: start: 20170714, end: 20171030
  21. PERJETA [Suspect]
     Active Substance: PERTUZUMAB
     Dosage: 420 MG, EVERY 3 WEEK
     Route: 042
     Dates: start: 20180723, end: 20210402
  22. TAXOTERE [Suspect]
     Active Substance: DOCETAXEL
     Indication: HER2 positive breast cancer
     Dosage: 106.22 MG, EVERY 3 WEEK
     Route: 042
     Dates: start: 20181017, end: 20181017
  23. TAXOTERE [Suspect]
     Active Substance: DOCETAXEL
     Dosage: 132.78 MG, EVERY 3 WEEK
     Route: 042
     Dates: start: 20180926, end: 20180926
  24. TAXOTERE [Suspect]
     Active Substance: DOCETAXEL
     Dosage: 106.22 MG, EVERY 3 WEEK
     Route: 042
     Dates: start: 20181017, end: 20181017
  25. TAXOTERE [Suspect]
     Active Substance: DOCETAXEL
     Dosage: 134.32 MG, EVERY 3 WEEK
     Route: 042
     Dates: start: 20180723, end: 20180904
  26. TAXOTERE [Suspect]
     Active Substance: DOCETAXEL
     Dosage: 137 MG, EVERY 3 WEEK
     Route: 042
     Dates: start: 20180608, end: 20180608
  27. FASLODEX [Suspect]
     Active Substance: FULVESTRANT
     Indication: HER2 positive breast cancer
     Dosage: 500 MG, EVERY 2 WEEK
     Route: 030
     Dates: start: 20181128, end: 20181226
  28. FASLODEX [Suspect]
     Active Substance: FULVESTRANT
     Dosage: 500 MG, EVERY 4 WEEK
     Route: 030
     Dates: start: 20181226
  29. ARIMIDEX [Suspect]
     Active Substance: ANASTROZOLE
     Indication: HER2 positive breast cancer
     Dosage: 1 MG, QD
     Route: 048
     Dates: start: 20170324, end: 20180514
  30. FOSTER [Concomitant]
     Active Substance: BECLOMETHASONE\FORMOTEROL
     Indication: Dyspnoea
     Dosage: ONGOING = CHECKED
     Dates: start: 20171120
  31. AMLODIPINE [Concomitant]
     Active Substance: AMLODIPINE BESYLATE
     Dosage: 5 MG, BID
     Dates: start: 20210402
  32. RAMIPRIL [Concomitant]
     Active Substance: RAMIPRIL
     Dosage: 5 MG, QD (ONGOING = NOT CHECKED)
     Dates: start: 20200424, end: 20210129
  33. ASPIRIN [Concomitant]
     Active Substance: ASPIRIN
     Dosage: 100 MG
     Dates: start: 20171120
  34. TORSEMIDE [Concomitant]
     Active Substance: TORSEMIDE
     Dosage: 10 MG, QD
     Dates: start: 20180214
  35. TORSEMIDE [Concomitant]
     Active Substance: TORSEMIDE
     Dosage: 10 MG, QD
     Dates: start: 20171213, end: 20180103
  36. TORSEMIDE [Concomitant]
     Active Substance: TORSEMIDE
     Dosage: 5 MG
     Dates: start: 20180103
  37. LOVENOX [Concomitant]
     Active Substance: ENOXAPARIN SODIUM
     Dosage: 40 MG
     Dates: start: 20180713
  38. DIMETHINDENE [Concomitant]
     Active Substance: DIMETHINDENE
     Dosage: 4 MG, EVERY 3 WEEK (ONGOING = CHECKED)
     Dates: start: 20170414
  39. RANITIDINE HYDROCHLORIDE [Concomitant]
     Active Substance: RANITIDINE HYDROCHLORIDE
     Dosage: 50 MG, EVERY 3 WEEK
     Dates: start: 20170414, end: 20191119
  40. NOVALGIN (METAMIZOLE SODIUM) [Concomitant]
     Active Substance: METAMIZOLE SODIUM
     Indication: Dyspnoea exertional
     Dosage: 120 [DRP] (ONGOING = CHECKED)
     Dates: start: 20180715
  41. KYTRIL [Concomitant]
     Active Substance: GRANISETRON HYDROCHLORIDE
     Dosage: 3 MG, EVERY 3 WEEK
     Dates: start: 20180608, end: 20181017
  42. METHYLPREDNISOLONE [Concomitant]
     Active Substance: METHYLPREDNISOLONE
     Dosage: UNK (ONGOING = CHECKED)
     Dates: start: 20191210
  43. AVELOX [Concomitant]
     Active Substance: MOXIFLOXACIN HYDROCHLORIDE
     Dosage: 400 MG, QD
     Dates: start: 20180712, end: 20180722
  44. DEXABENE [Concomitant]
     Dosage: 12 MG, EVERY 3 WEEK (ONGOING = CHECKED)
     Dates: start: 20181107
  45. POLYETHYLENE GLYCOL 3350\POTASSIUM CHLORIDE\SODIUM BICARBONATE\SODIUM [Concomitant]
     Active Substance: POLYETHYLENE GLYCOL 3350\POTASSIUM CHLORIDE\SODIUM BICARBONATE\SODIUM CHLORIDE
     Dosage: UNK (ONGOING = CHECKED)
     Dates: start: 20180715
  46. LANNAPRIL PLUS [Concomitant]
     Dosage: 15 MG, QD
     Dates: start: 20210129
  47. PANTOPRAZOLE [Concomitant]
     Active Substance: PANTOPRAZOLE
     Dosage: UNK (ONGOING = CHECKED)
  48. CORTISONE ACETATE [Concomitant]
     Active Substance: CORTISONE ACETATE
     Dosage: UNK, EVERY 3 WEEK
     Dates: start: 20180608, end: 20180608
  49. DEXAMETHASONE [Concomitant]
     Active Substance: DEXAMETHASONE
     Dosage: 8 MG, BID
     Dates: start: 20180723, end: 20181017
  50. DEXAMETHASONE [Concomitant]
     Active Substance: DEXAMETHASONE
     Dosage: 8 MG (ONGOING = CHECKED)
     Dates: start: 20181017
  51. BISOPROLOL FUMARATE [Concomitant]
     Active Substance: BISOPROLOL FUMARATE
     Dosage: 2.5 MG
     Dates: start: 20180814, end: 20191007
  52. BISOPROLOL FUMARATE [Concomitant]
     Active Substance: BISOPROLOL FUMARATE
     Dosage: 2.5 MG, QD
     Dates: start: 20171213
  53. BISOPROLOL FUMARATE [Concomitant]
     Active Substance: BISOPROLOL FUMARATE
     Dosage: 1.25 MG, QD
     Dates: start: 20171120, end: 20171213
  54. DEXAMETHASONE [Concomitant]
     Active Substance: DEXAMETHASONE
     Dosage: 12 MG, EVERY 3 WEEK
     Dates: start: 20170414, end: 20180514
  55. XGEVA [Concomitant]
     Active Substance: DENOSUMAB
     Dosage: 120 MG, MONTHLY; ONGOING = CHECKED
     Dates: start: 20181017, end: 20201127
  56. XGEVA [Concomitant]
     Active Substance: DENOSUMAB
     Dosage: 120 MG, MONTHLY
     Dates: start: 20170505, end: 20180329
  57. XGEVA [Concomitant]
     Active Substance: DENOSUMAB
     Dosage: ONGOING = NOT CHECKED
     Dates: start: 20200310, end: 20201127
  58. VIBRAMYCIN [Concomitant]
     Active Substance: DOXYCYCLINE
     Dosage: UNK
     Dates: start: 20180417
  59. FERINJECT [Concomitant]
     Active Substance: FERRIC CARBOXYMALTOSE
     Dosage: 500 MG
     Dates: start: 20190826, end: 20190826
  60. MEROPENEM [Concomitant]
     Active Substance: MEROPENEM
     Dosage: UNK
     Dates: start: 20180705, end: 20180712
  61. ACETAMINOPHEN [Concomitant]
     Active Substance: ACETAMINOPHEN
     Dosage: 3000 MG (ONGOING = CHECKED)
     Dates: start: 20180715

REACTIONS (2)
  - Osteonecrosis of jaw [Recovered/Resolved]
  - Underdose [Unknown]

NARRATIVE: CASE EVENT DATE: 20201127
